FAERS Safety Report 12099298 (Version 1)
Quarter: 2016Q1

REPORT INFORMATION
  Report Type: Spontaneous
  Country: US (occurrence: None)
  Receive Date: 20160219
  Receipt Date: 20160219
  Transmission Date: 20160526
  Serious: Yes (Death)
  Sender: FDA-Public Use
  Company Number: None

PATIENT
  Age: 78 Year
  Sex: Female
  Weight: 79.38 kg

DRUGS (2)
  1. AMIDROME [Concomitant]
  2. TARCEVA [Suspect]
     Active Substance: ERLOTINIB HYDROCHLORIDE
     Indication: TERMINAL STATE
     Dosage: PILLS
     Route: 048
     Dates: start: 20150904, end: 20160110

REACTIONS (3)
  - Palpitations [None]
  - Oral pain [None]
  - Stevens-Johnson syndrome [None]

NARRATIVE: CASE EVENT DATE: 20151115
